FAERS Safety Report 4764626-8 (Version None)
Quarter: 2005Q3

REPORT INFORMATION
  Report Type: 
  Country: None (occurrence: None)
  Receive Date: 20050907
  Receipt Date: 20050825
  Transmission Date: 20060218
  Serious: Yes (Hospitalization)
  Sender: FDA-Public Use
  Company Number: TPA2005A01003

PATIENT
  Sex: Male
  Weight: 121.564 kg

DRUGS (4)
  1. ACTOS [Suspect]
     Indication: DIABETES MELLITUS
     Dosage: 1 IN 1 D, PER ORAL
     Route: 048
     Dates: end: 20050811
  2. BYETTA [Suspect]
     Indication: DIABETES MELLITUS
     Dosage: 5 MCG, 2 IN 1 D, INJECTION
     Dates: start: 20050808, end: 20050811
  3. GLUCOPHAGE [Concomitant]
  4. HUMULIN N [Concomitant]

REACTIONS (2)
  - GLYCOSYLATED HAEMOGLOBIN INCREASED [None]
  - PANCREATITIS ACUTE [None]
